FAERS Safety Report 8177920-8 (Version None)
Quarter: 2012Q1

REPORT INFORMATION
  Report Type: 
  Country: None (occurrence: None)
  Receive Date: 20120130
  Receipt Date: 20111109
  Transmission Date: 20120608
  Serious: Yes (Hospitalization)
  Sender: FDA-Public Use
  Company Number: 032591

PATIENT
  Age: 33 Year
  Sex: Male
  Weight: 84 kg

DRUGS (6)
  1. ATIVAN [Concomitant]
  2. AMLODIPINE [Concomitant]
  3. KEPPRA [Suspect]
     Indication: CONVULSION
     Dosage: (3000 MG, 3000 MG ORAL)
     Route: 048
     Dates: start: 20110214
  4. LAMOTRIGINE [Concomitant]
  5. LISINOPRIL [Concomitant]
  6. TYLENOL (CAPLET) [Concomitant]

REACTIONS (2)
  - SOCIAL AVOIDANT BEHAVIOUR [None]
  - EPILEPSY [None]
